FAERS Safety Report 6524103-0 (Version None)
Quarter: 2009Q4

REPORT INFORMATION
  Report Type: 
  Country: None (occurrence: None)
  Receive Date: 20091230
  Receipt Date: 20091230
  Transmission Date: 20100525
  Serious: Yes (Other)
  Sender: FDA-Public Use
  Company Number: None

PATIENT
  Age: 68 Year
  Sex: Female
  Weight: 49.8957 kg

DRUGS (1)
  1. ZETIA [Suspect]
     Indication: BLOOD CHOLESTEROL INCREASED
     Dosage: 1 TABLET DAILY
     Dates: start: 20090821, end: 20091120

REACTIONS (12)
  - ABDOMINAL PAIN UPPER [None]
  - ASTHENIA [None]
  - BACK PAIN [None]
  - BRONCHITIS [None]
  - DIARRHOEA [None]
  - DYSPEPSIA [None]
  - DYSPNOEA [None]
  - FATIGUE [None]
  - FEELING HOT [None]
  - FLATULENCE [None]
  - MUSCLE STRAIN [None]
  - ORAL DISCOMFORT [None]
